FAERS Safety Report 16014521 (Version 2)
Quarter: 2019Q1

REPORT INFORMATION
  Report Type: Spontaneous
  Country: AU (occurrence: AU)
  Receive Date: 20190227
  Receipt Date: 20190318
  Transmission Date: 20190418
  Serious: Yes (Hospitalization)
  Sender: FDA-Public Use
  Company Number: AU-NOVOPROD-647871

PATIENT
  Age: 45 Year
  Sex: Female
  Weight: 119 kg

DRUGS (1)
  1. SAXENDA [Suspect]
     Active Substance: LIRAGLUTIDE
     Indication: WEIGHT CONTROL
     Dosage: 3 MG
     Route: 065
     Dates: start: 20160525, end: 20160722

REACTIONS (5)
  - Thinking abnormal [Recovered/Resolved]
  - Anxiety [Recovering/Resolving]
  - Depressed mood [Recovered/Resolved]
  - Paranoia [Unknown]
  - Suicidal ideation [Recovered/Resolved]

NARRATIVE: CASE EVENT DATE: 20160722
